FAERS Safety Report 7298318-0 (Version None)
Quarter: 2011Q1

REPORT INFORMATION
  Report Type: 
  Country: None (occurrence: None)
  Receive Date: 20110214
  Receipt Date: 20110214
  Transmission Date: 20110831
  Serious: Yes (Hospitalization, Other)
  Sender: FDA-Public Use
  Company Number: None

PATIENT
  Sex: Male
  Weight: 73.0291 kg

DRUGS (1)
  1. NAMENDA [Suspect]
     Indication: DEMENTIA
     Dosage: 5 MG DAILY PO
     Route: 048
     Dates: start: 20110127, end: 20110128

REACTIONS (3)
  - VOMITING [None]
  - CONVULSION [None]
  - FAECAL INCONTINENCE [None]
